FAERS Safety Report 9948192 (Version 2)
Quarter: 2014Q1

REPORT INFORMATION
  Report Type: Report from Study
  Country: US (occurrence: US)
  Receive Date: 20140303
  Receipt Date: 20140303
  Transmission Date: 20141002
  Serious: No
  Sender: FDA-Public Use
  Company Number: US-ABBVIE-12P-163-0920418-00

PATIENT
  Age: 47 Year
  Sex: Male

DRUGS (9)
  1. HUMIRA [Suspect]
     Indication: CROHN^S DISEASE
     Dates: start: 201111
  2. DIAZAPAM [Concomitant]
     Indication: FEELING OF RELAXATION
  3. DIAZAPAM [Concomitant]
     Indication: FEELING OF RELAXATION
  4. LISINOPRIL [Concomitant]
     Indication: PRODUCT USED FOR UNKNOWN INDICATION
     Dosage: 10MG DAILY
  5. AMITRIPTYLINE [Concomitant]
     Indication: FEELING OF RELAXATION
     Dosage: AT BEDTIME
  6. TEMAZEPAM [Concomitant]
     Indication: INSOMNIA
     Dosage: AT BEDTIME
  7. LORACET [Concomitant]
     Indication: PAIN
     Dosage: 7.5/650 MG
  8. LORACET [Concomitant]
     Indication: PAIN
  9. PROCTOFOAM HC [Concomitant]
     Indication: HAEMORRHOIDS

REACTIONS (3)
  - Drug ineffective [Not Recovered/Not Resolved]
  - Crohn^s disease [Not Recovered/Not Resolved]
  - Nasopharyngitis [Not Recovered/Not Resolved]
